FAERS Safety Report 7201254-9 (Version None)
Quarter: 2010Q4

REPORT INFORMATION
  Report Type: 
  Country: None (occurrence: None)
  Receive Date: 20101229
  Receipt Date: 20101220
  Transmission Date: 20110411
  Serious: Yes (Other)
  Sender: FDA-Public Use
  Company Number: JP-SHIRE-SPV1-2010-02187

PATIENT
  Sex: Female

DRUGS (2)
  1. FOSRENOL [Suspect]
     Indication: HYPERPHOSPHATAEMIA
     Dosage: 750MG DAILY
     Route: 048
  2. FOSRENOL [Suspect]
     Dosage: 1500MG DAILY
     Route: 048
     Dates: start: 20100101

REACTIONS (1)
  - GASTRIC ULCER [None]
